FAERS Safety Report 18191852 (Version 3)
Quarter: 2021Q3

REPORT INFORMATION
  Report Type: Report from Study
  Country: US (occurrence: US)
  Receive Date: 20200825
  Receipt Date: 20210729
  Transmission Date: 20211014
  Serious: Yes (Other)
  Sender: FDA-Public Use
  Company Number: US-GW PHARMA-202008USGW02860

PATIENT

DRUGS (4)
  1. ONFI [Suspect]
     Active Substance: CLOBAZAM
     Indication: PRODUCT USED FOR UNKNOWN INDICATION
     Dosage: UNK
     Route: 065
  2. EPIDIOLEX [Suspect]
     Active Substance: CANNABIDIOL
     Indication: PRODUCT USED FOR UNKNOWN INDICATION
     Dosage: 2.49 MG/KG, 180 MILLIGRAM, QD
     Route: 048
     Dates: start: 20200605, end: 20200611
  3. EPIDIOLEX [Suspect]
     Active Substance: CANNABIDIOL
     Dosage: 4.99 MG/KG, 360 MILLIGRAM, QD
     Route: 048
     Dates: start: 20200701
  4. EPIDIOLEX [Suspect]
     Active Substance: CANNABIDIOL
     Dosage: UNKNOWN DOSE
     Route: 048
     Dates: start: 20200612, end: 2020

REACTIONS (3)
  - Diarrhoea [Not Recovered/Not Resolved]
  - Reaction to excipient [Unknown]
  - Sedation [Unknown]

NARRATIVE: CASE EVENT DATE: 2020
